FAERS Safety Report 10989310 (Version 1)
Quarter: 2015Q1

REPORT INFORMATION
  Report Type: Spontaneous
  Country: US (occurrence: None)
  Receive Date: 20150326
  Receipt Date: 20150326
  Transmission Date: 20150721
  Serious: No
  Sender: FDA-Public Use
  Company Number: 1000074657

PATIENT
  Age: 61 Year
  Sex: Female

DRUGS (4)
  1. LINZESS [Suspect]
     Active Substance: LINACLOTIDE
     Indication: CONSTIPATION
  2. ATENOLOL. [Concomitant]
     Active Substance: ATENOLOL
  3. ENALAPRIL [Concomitant]
     Active Substance: ENALAPRIL
  4. LASIX [Concomitant]
     Active Substance: FUROSEMIDE

REACTIONS (3)
  - Abdominal pain [None]
  - Abdominal pain lower [None]
  - Intentional product misuse [None]

NARRATIVE: CASE EVENT DATE: 201502
